FAERS Safety Report 24678957 (Version 1)
Quarter: 2024Q4

REPORT INFORMATION
  Report Type: Spontaneous
  Country: ES (occurrence: ES)
  Receive Date: 20241129
  Receipt Date: 20241129
  Transmission Date: 20250115
  Serious: Yes (Other)
  Sender: AUROBINDO
  Company Number: ES-AEMPS-1593400

PATIENT
  Age: 72 Year
  Sex: Male

DRUGS (2)
  1. VORICONAZOLE [Interacting]
     Active Substance: VORICONAZOLE
     Indication: Aspergillus infection
     Dosage: 100 MILLIGRAM, TWO TIMES A DAY
     Route: 042
     Dates: start: 20240327
  2. METAMIZOL [Interacting]
     Active Substance: METAMIZOLE SODIUM
     Indication: Back pain
     Dosage: 2 GRAM, 3 TIMES A DAY
     Route: 042
     Dates: start: 20240407, end: 20240411

REACTIONS (1)
  - Drug interaction [Recovered/Resolved]

NARRATIVE: CASE EVENT DATE: 20240408
